FAERS Safety Report 7319420-0 (Version None)
Quarter: 2011Q1

REPORT INFORMATION
  Report Type: 
  Country: None (occurrence: None)
  Receive Date: 20110228
  Receipt Date: 20100326
  Transmission Date: 20110831
  Serious: No
  Sender: FDA-Public Use
  Company Number: A0850685A

PATIENT
  Sex: Male

DRUGS (2)
  1. LAMOTRIGINE [Suspect]
     Route: 065
  2. LAMICTAL [Suspect]
     Dosage: 100MG SINGLE DOSE
     Route: 065

REACTIONS (3)
  - DISABILITY [None]
  - DRUG EFFECT DECREASED [None]
  - MALAISE [None]
